FAERS Safety Report 6665603-2 (Version None)
Quarter: 2010Q2

REPORT INFORMATION
  Report Type: 
  Country: None (occurrence: None)
  Receive Date: 20100402
  Receipt Date: 20100322
  Transmission Date: 20101027
  Serious: Yes (Hospitalization, Disabling)
  Sender: FDA-Public Use
  Company Number: DE-WYE-H14328010

PATIENT
  Sex: Female
  Weight: 82 kg

DRUGS (9)
  1. PANTOPRAZOLE [Suspect]
  2. METOPROLOL TARTRATE [Suspect]
     Dosage: 142.5 MG, FREQUENCY UNKNOWN
  3. ASPIRIN [Suspect]
     Dosage: 100 MG, FREQUENCY UNKNOWN
  4. SYMBICORT [Suspect]
     Dosage: UNKNOWN
  5. TORSEMIDE [Suspect]
     Dosage: 10 MG, FREQUENCY UNKNOWN
  6. AMANTADINE HCL [Suspect]
     Dosage: 100 MEQ, FREQUENCY UNKNOWN
  7. FLUVASTATIN [Suspect]
     Dosage: 80 MG, FREQUENCY UNKNOWN
  8. RASILEZ [Suspect]
     Dosage: UNKNOWN
     Dates: start: 20081121
  9. RAMIPRIL [Suspect]
     Dosage: 10 MG, FREQUENCY UNKNOWN

REACTIONS (5)
  - CONDITION AGGRAVATED [None]
  - CORONARY ARTERY DISEASE [None]
  - CORONARY ARTERY OCCLUSION [None]
  - CORONARY ARTERY STENOSIS [None]
  - DIABETES MELLITUS [None]
